FAERS Safety Report 4816484-0 (Version None)
Quarter: 2005Q4

REPORT INFORMATION
  Report Type: 
  Country: None (occurrence: None)
  Receive Date: 20051028
  Receipt Date: 20051020
  Transmission Date: 20060501
  Serious: Yes (Hospitalization, Other)
  Sender: FDA-Public Use
  Company Number: GBWYE708531MAY05

PATIENT
  Age: 58 Year
  Sex: Male

DRUGS (3)
  1. RAPAMUNE [Suspect]
     Indication: RENAL TRANSPLANT
     Dosage: 4 MG, 1X PER 1 DAY, ORAL
     Route: 048
     Dates: start: 20041228, end: 20050526
  2. METHYLPREDNISOLONE [Concomitant]
  3. TACROLIMUS (TACROLIMUS) [Concomitant]

REACTIONS (2)
  - DRUG INEFFECTIVE [None]
  - TRANSPLANT REJECTION [None]
